FAERS Safety Report 23967509 (Version 1)
Quarter: 2024Q2

REPORT INFORMATION
  Report Type: Spontaneous
  Country: US (occurrence: None)
  Receive Date: 20240611
  Receipt Date: 20240611
  Transmission Date: 20240715
  Serious: Yes (Life-Threatening, Hospitalization)
  Sender: FDA-Public Use
  Company Number: None

PATIENT
  Age: 51 Year
  Sex: Female
  Weight: 94.95 kg

DRUGS (1)
  1. EMEND (FOSAPREPITANT DIMEGLUMINE) [Suspect]
     Active Substance: FOSAPREPITANT DIMEGLUMINE
     Indication: Prophylaxis of nausea and vomiting
     Dosage: OTHER FREQUENCY : ONCE;?
     Route: 017
     Dates: start: 20240604, end: 20240604

REACTIONS (7)
  - Infusion related reaction [None]
  - Cardiac arrest [None]
  - Resuscitation [None]
  - Pulseless electrical activity [None]
  - Respiratory arrest [None]
  - Erythema [None]
  - Anaphylactic reaction [None]

NARRATIVE: CASE EVENT DATE: 20240604
